FAERS Safety Report 5618221-9 (Version None)
Quarter: 2008Q1

REPORT INFORMATION
  Report Type: 
  Country: None (occurrence: None)
  Receive Date: 20080207
  Receipt Date: 20080128
  Transmission Date: 20080703
  Serious: Yes (Other)
  Sender: FDA-Public Use
  Company Number: US-JNJFOC-20080107338

PATIENT
  Sex: Female
  Weight: 53.07 kg

DRUGS (3)
  1. TOPAMAX [Suspect]
     Indication: MIGRAINE
  2. LEVOXYL [Concomitant]
     Indication: HYPOTHYROIDISM
     Route: 048
  3. NORTRIPTYLINE HCL [Concomitant]
     Indication: MIGRAINE
     Route: 048

REACTIONS (3)
  - FEELING JITTERY [None]
  - INSOMNIA [None]
  - PALPITATIONS [None]
